FAERS Safety Report 4993317-3 (Version None)
Quarter: 2006Q2

REPORT INFORMATION
  Report Type: 
  Country: None (occurrence: None)
  Receive Date: 20060505
  Receipt Date: 20060425
  Transmission Date: 20061013
  Serious: Yes (Hospitalization, Other)
  Sender: FDA-Public Use
  Company Number: PHBS2006US06124

PATIENT
  Age: 36 Year
  Sex: Female

DRUGS (10)
  1. CLOZAPINE [Suspect]
     Indication: SCHIZOPHRENIA
     Dosage: 25 MG/D
     Route: 065
  2. CLOZAPINE [Suspect]
     Dosage: 300 MG/D
     Route: 065
  3. CLOZAPINE [Suspect]
     Dosage: 25 MG/D
     Route: 065
  4. CLOZAPINE [Suspect]
     Dosage: 300 MG/D
     Route: 065
  5. QUETIAPINE FUMARATE [Concomitant]
     Dosage: 400 MG, QHS
     Route: 065
  6. PAROXETINE HCL [Concomitant]
     Dosage: 20 MG, QHS
     Route: 065
  7. ARIPIPRAZOLE [Concomitant]
     Dosage: 15 MG, BID
     Route: 065
  8. OLANZAPINE [Concomitant]
     Dosage: 20 MG, QHS
     Route: 065
  9. ZIPRASIDONE HCL [Concomitant]
     Dosage: 80 MG, BID
     Route: 065
  10. DIVALPROEX SODIUM [Concomitant]
     Indication: MANIA
     Dosage: 1500 MG, QHS
     Route: 065

REACTIONS (16)
  - ASCITES [None]
  - CARDIAC TAMPONADE [None]
  - CATHETER PLACEMENT [None]
  - DERMATOMYOSITIS [None]
  - DYSPNOEA [None]
  - HAEMODYNAMIC TEST ABNORMAL [None]
  - HYPOXIA [None]
  - OXYGEN SATURATION DECREASED [None]
  - PARANOIA [None]
  - PERICARDIAL EFFUSION [None]
  - PERICARDITIS [None]
  - PLEURAL EFFUSION [None]
  - PNEUMONITIS [None]
  - RASH MACULAR [None]
  - TACHYCARDIA [None]
  - TACHYPNOEA [None]
